FAERS Safety Report 5359679-2 (Version None)
Quarter: 2007Q2

REPORT INFORMATION
  Report Type: 
  Country: None (occurrence: None)
  Receive Date: 20070530
  Receipt Date: 20070329
  Transmission Date: 20071010
  Serious: No
  Sender: FDA-Public Use
  Company Number: 2007PV032636

PATIENT
  Age: 56 Year
  Sex: Male

DRUGS (6)
  1. BYETTA [Suspect]
     Indication: DIABETES MELLITUS
     Dosage: SC
     Route: 058
     Dates: start: 20060101, end: 20060801
  2. HUMALOG [Concomitant]
  3. HUMULIN N [Concomitant]
  4. INHALERS [Concomitant]
  5. SYMLIN [Concomitant]
  6. OXYGEN [Concomitant]

REACTIONS (2)
  - DRUG INEFFECTIVE [None]
  - HYPOAESTHESIA [None]
